FAERS Safety Report 23555888 (Version 1)
Quarter: 2024Q1

REPORT INFORMATION
  Report Type: Report from Study
  Country: US (occurrence: US)
  Receive Date: 20240222
  Receipt Date: 20240222
  Transmission Date: 20240410
  Serious: Yes (Other)
  Sender: FDA-Public Use
  Company Number: US-SEATTLE GENETICS-2024SGN01750

PATIENT
  Sex: Female

DRUGS (1)
  1. TUCATINIB [Suspect]
     Active Substance: TUCATINIB
     Indication: Breast cancer female
     Route: 065

REACTIONS (13)
  - Diabetes mellitus [Unknown]
  - Blood pressure increased [Unknown]
  - Dizziness [Unknown]
  - Heart valve incompetence [Unknown]
  - Ear pain [Unknown]
  - Middle ear effusion [Unknown]
  - Muscular weakness [Unknown]
  - Pain [Unknown]
  - Tinnitus [Unknown]
  - Nervousness [Unknown]
  - Fatigue [Unknown]
  - Dyspnoea [Unknown]
  - Anxiety [Unknown]
